FAERS Safety Report 5115841-5 (Version None)
Quarter: 2006Q3

REPORT INFORMATION
  Report Type: 
  Country: None (occurrence: None)
  Receive Date: 20060927
  Receipt Date: 20060823
  Transmission Date: 20061208
  Serious: Yes (Life-Threatening, Hospitalization, Other)
  Sender: FDA-Public Use
  Company Number: PHBS2006JP12927

PATIENT
  Age: 42 Year
  Sex: Female
  Weight: 87 kg

DRUGS (4)
  1. APRESOLINE [Suspect]
     Indication: PREGNANCY INDUCED HYPERTENSION
     Dosage: 160 MG/DAY
     Route: 048
     Dates: start: 20060802
  2. ALDOMET [Suspect]
     Indication: PREGNANCY INDUCED HYPERTENSION
     Dosage: 750 MG/DAY
     Route: 048
     Dates: start: 20060802, end: 20060823
  3. ARTIST [Concomitant]
     Indication: PREGNANCY INDUCED HYPERTENSION
     Dosage: 20 MG/DAY
     Route: 048
     Dates: start: 20060803
  4. NPH INSULIN [Concomitant]
     Indication: GESTATIONAL DIABETES

REACTIONS (3)
  - CAESAREAN SECTION [None]
  - DRUG EXPOSURE DURING PREGNANCY [None]
  - THROMBOCYTOPENIA [None]
